FAERS Safety Report 25535455 (Version 1)
Quarter: 2025Q3

REPORT INFORMATION
  Report Type: Report from Study
  Country: EU (occurrence: EU)
  Receive Date: 20250709
  Receipt Date: 20250709
  Transmission Date: 20251021
  Serious: Yes (Hospitalization)
  Sender: MYLAN
  Company Number: None

PATIENT
  Age: 87 Year
  Sex: Male

DRUGS (24)
  1. DOXAZOSIN [Suspect]
     Active Substance: DOXAZOSIN MESYLATE
     Indication: Hypertension
     Dosage: 8 MILLIGRAM, QD
     Dates: start: 20250121
  2. DOXAZOSIN [Suspect]
     Active Substance: DOXAZOSIN MESYLATE
     Dosage: 8 MILLIGRAM, QD
     Route: 048
     Dates: start: 20250121
  3. DOXAZOSIN [Suspect]
     Active Substance: DOXAZOSIN MESYLATE
     Dosage: 8 MILLIGRAM, QD
     Route: 048
     Dates: start: 20250121
  4. DOXAZOSIN [Suspect]
     Active Substance: DOXAZOSIN MESYLATE
     Dosage: 8 MILLIGRAM, QD
     Dates: start: 20250121
  5. LOSARTAN [Suspect]
     Active Substance: LOSARTAN
     Indication: Hypertension
     Dosage: 25 MILLIGRAM, QD
     Dates: start: 20250323
  6. LOSARTAN [Suspect]
     Active Substance: LOSARTAN
     Dosage: 25 MILLIGRAM, QD
     Route: 048
     Dates: start: 20250323
  7. LOSARTAN [Suspect]
     Active Substance: LOSARTAN
     Dosage: 25 MILLIGRAM, QD
     Route: 048
     Dates: start: 20250323
  8. LOSARTAN [Suspect]
     Active Substance: LOSARTAN
     Dosage: 25 MILLIGRAM, QD
     Dates: start: 20250323
  9. BISOPROLOL [Suspect]
     Active Substance: BISOPROLOL
     Indication: Hypertension
     Dosage: 2.5 MILLIGRAM, BID
     Dates: start: 20250121
  10. BISOPROLOL [Suspect]
     Active Substance: BISOPROLOL
     Dosage: 2.5 MILLIGRAM, BID
     Route: 048
     Dates: start: 20250121
  11. BISOPROLOL [Suspect]
     Active Substance: BISOPROLOL
     Dosage: 2.5 MILLIGRAM, BID
     Route: 048
     Dates: start: 20250121
  12. BISOPROLOL [Suspect]
     Active Substance: BISOPROLOL
     Dosage: 2.5 MILLIGRAM, BID
     Dates: start: 20250121
  13. DEXKETOPROFEN [Suspect]
     Active Substance: DEXKETOPROFEN
     Indication: Pain
  14. DEXKETOPROFEN [Suspect]
     Active Substance: DEXKETOPROFEN
     Route: 048
  15. DEXKETOPROFEN [Suspect]
     Active Substance: DEXKETOPROFEN
     Route: 048
  16. DEXKETOPROFEN [Suspect]
     Active Substance: DEXKETOPROFEN
  17. TAPENTADOL [Suspect]
     Active Substance: TAPENTADOL
     Indication: Product used for unknown indication
     Dosage: UNK BID (EVERY 12 HOURS)
     Dates: start: 20250321
  18. TAPENTADOL [Suspect]
     Active Substance: TAPENTADOL
     Dosage: UNK BID (EVERY 12 HOURS)
     Route: 065
     Dates: start: 20250321
  19. TAPENTADOL [Suspect]
     Active Substance: TAPENTADOL
     Dosage: UNK BID (EVERY 12 HOURS)
     Route: 065
     Dates: start: 20250321
  20. TAPENTADOL [Suspect]
     Active Substance: TAPENTADOL
     Dosage: UNK BID (EVERY 12 HOURS)
     Dates: start: 20250321
  21. SITAGLIPTIN [Concomitant]
     Active Substance: SITAGLIPTIN
  22. SITAGLIPTIN [Concomitant]
     Active Substance: SITAGLIPTIN
     Route: 065
  23. SITAGLIPTIN [Concomitant]
     Active Substance: SITAGLIPTIN
     Route: 065
  24. SITAGLIPTIN [Concomitant]
     Active Substance: SITAGLIPTIN

REACTIONS (3)
  - Disorientation [Recovered/Resolved]
  - Acute kidney injury [Recovering/Resolving]
  - Hypotension [Recovered/Resolved]

NARRATIVE: CASE EVENT DATE: 20250326
